FAERS Safety Report 7037247-4 (Version None)
Quarter: 2010Q4

REPORT INFORMATION
  Report Type: 
  Country: None (occurrence: None)
  Receive Date: 20101011
  Receipt Date: 20100929
  Transmission Date: 20110411
  Serious: Yes (Death, Life-Threatening, Hospitalization)
  Sender: FDA-Public Use
  Company Number: BG-PFIZER INC-2007001323

PATIENT
  Age: 59 Year
  Sex: Male
  Weight: 85 kg

DRUGS (1)
  1. SUNITINIB MALATE [Suspect]
     Indication: METASTATIC RENAL CELL CARCINOMA
     Dosage: 50 MG, 1X/DAY
     Route: 048
     Dates: start: 20061201, end: 20061225

REACTIONS (6)
  - ABDOMINAL PAIN UPPER [None]
  - COMA [None]
  - GASTRITIS [None]
  - RENAL FAILURE [None]
  - SUBILEUS [None]
  - UPPER GASTROINTESTINAL HAEMORRHAGE [None]
